FAERS Safety Report 5493473-7 (Version None)
Quarter: 2007Q4

REPORT INFORMATION
  Report Type: 
  Country: None (occurrence: None)
  Receive Date: 20071019
  Receipt Date: 20071009
  Transmission Date: 20080405
  Serious: Yes (Disabling)
  Sender: FDA-Public Use
  Company Number: GXKR2007GB08723

PATIENT
  Age: 42 Year
  Sex: Female
  Weight: 65 kg

DRUGS (2)
  1. CO-CODAMOL [Suspect]
     Dosage: 2 DF, ORAL
     Route: 048
  2. DULOXETINE HYDROCHLORIDE [Suspect]
     Dosage: 60 MG, ORAL
     Route: 048
     Dates: start: 20070912

REACTIONS (5)
  - AGITATION [None]
  - HEADACHE [None]
  - INSOMNIA [None]
  - PAIN [None]
  - SOMNOLENCE [None]
